FAERS Safety Report 9401430 (Version 2)
Quarter: 2013Q4

REPORT INFORMATION
  Report Type: Report from Study
  Country: IT (occurrence: IT)
  Receive Date: 20130715
  Receipt Date: 20131227
  Transmission Date: 20140711
  Serious: Yes (Other)
  Sender: FDA-Public Use
  Company Number: IT-ROCHE-1248234

PATIENT
  Sex: 0

DRUGS (6)
  1. CAPECITABINE [Suspect]
     Indication: ADENOCARCINOMA GASTRIC
     Route: 048
  2. CAPECITABINE [Suspect]
     Indication: OESOPHAGEAL ADENOCARCINOMA
  3. DOCETAXEL [Suspect]
     Indication: ADENOCARCINOMA GASTRIC
     Dosage: ON DAY 1
     Route: 042
  4. DOCETAXEL [Suspect]
     Indication: OESOPHAGEAL ADENOCARCINOMA
  5. OXALIPLATIN [Suspect]
     Indication: ADENOCARCINOMA GASTRIC
     Route: 042
  6. OXALIPLATIN [Suspect]
     Indication: OESOPHAGEAL ADENOCARCINOMA

REACTIONS (11)
  - Neurotoxicity [Unknown]
  - Mucosal inflammation [Unknown]
  - Neutropenia [Unknown]
  - Thrombocytopenia [Unknown]
  - Anaemia [Unknown]
  - Febrile neutropenia [Unknown]
  - Vomiting [Unknown]
  - Diarrhoea [Unknown]
  - Nausea [Unknown]
  - Fatigue [Unknown]
  - Palmar-plantar erythrodysaesthesia syndrome [Unknown]
